FAERS Safety Report 9386958 (Version 1)
Quarter: 2013Q3

REPORT INFORMATION
  Report Type: Spontaneous
  Country: US (occurrence: None)
  Receive Date: 20130703
  Receipt Date: 20130703
  Transmission Date: 20140515
  Serious: Yes (Life-Threatening, Hospitalization)
  Sender: FDA-Public Use
  Company Number: None

PATIENT
  Age: 59 Year
  Sex: Male
  Weight: 131.4 kg

DRUGS (1)
  1. PEGFILGRASTIM [Suspect]
     Indication: PANCYTOPENIA
     Route: 042
     Dates: start: 20130410, end: 20130410

REACTIONS (5)
  - Dyspnoea [None]
  - Lung infiltration [None]
  - Renal failure acute [None]
  - Rash [None]
  - Acute febrile neutrophilic dermatosis [None]
